FAERS Safety Report 20858407 (Version 4)
Quarter: 2022Q3

REPORT INFORMATION
  Report Type: Report from Study
  Country: BR (occurrence: BR)
  Receive Date: 20220521
  Receipt Date: 20220716
  Transmission Date: 20221027
  Serious: Yes (Other)
  Sender: FDA-Public Use
  Company Number: BR-NOVARTISPH-NVSC2022BR116667

PATIENT
  Age: 70 Year
  Sex: Female
  Weight: 77 kg

DRUGS (4)
  1. DIOVAN HCT [Suspect]
     Active Substance: HYDROCHLOROTHIAZIDE\VALSARTAN
     Indication: Hypertension
     Dosage: QD
     Route: 048
     Dates: start: 20220423, end: 20220516
  2. DIOVAN HCT [Suspect]
     Active Substance: HYDROCHLOROTHIAZIDE\VALSARTAN
     Dosage: (START DATE- 30 YEARS AGO)
     Route: 065
  3. VENAFLON [Concomitant]
     Indication: Glucose tolerance impaired
     Dosage: QD
     Route: 065
     Dates: start: 201509
  4. GLIFAGE [Concomitant]
     Active Substance: METFORMIN HYDROCHLORIDE
     Indication: Collateral circulation
     Dosage: QD
     Route: 065
     Dates: start: 201109

REACTIONS (6)
  - Hypertension [Not Recovered/Not Resolved]
  - Blood pressure abnormal [Recovered/Resolved]
  - Headache [Recovered/Resolved]
  - Urine output decreased [Recovered/Resolved]
  - Blood pressure abnormal [Recovered/Resolved]
  - Feeling abnormal [Unknown]

NARRATIVE: CASE EVENT DATE: 20220423
